FAERS Safety Report 9887837 (Version 2)
Quarter: 2013Q4

REPORT INFORMATION
  Report Type: Spontaneous
  Country: US (occurrence: None)
  Receive Date: 20131223
  Receipt Date: 20131223
  Transmission Date: 20140711
  Serious: No
  Sender: FDA-Public Use
  Company Number: 220040

PATIENT
  Age: 72 Year
  Sex: Female

DRUGS (8)
  1. PICATO (0.05%, GEL) [Suspect]
     Indication: ACTINIC KERATOSIS
     Route: 061
     Dates: start: 20121220, end: 20121221
  2. IRBESARTAN [Concomitant]
  3. SIMVASTATIN [Concomitant]
  4. HCTZ (HYDROCHLOROTHIAZIDE) [Concomitant]
  5. NEXIUM (ESOMEPRAZOLE MAGNESIUM) [Concomitant]
  6. PREMARIN (ESTROGENS CONJUGATED) [Concomitant]
  7. COQ10 (UBIDECARENONE) [Concomitant]
  8. KELP (MACROCYSTIS PYRIFERA) [Concomitant]

REACTIONS (5)
  - Application site rash [None]
  - Rash generalised [None]
  - Nausea [None]
  - Application site pruritus [None]
  - Medication error [None]
